FAERS Safety Report 4875288-3 (Version None)
Quarter: 2006Q1

REPORT INFORMATION
  Report Type: 
  Country: None (occurrence: None)
  Receive Date: 20060109
  Receipt Date: 20060102
  Transmission Date: 20060701
  Serious: Yes (Life-Threatening, Congenital Anomaly, Other)
  Sender: FDA-Public Use
  Company Number: PHBS2006FR00471

PATIENT
  Sex: Female
  Weight: 2.68 kg

DRUGS (4)
  1. VALSARTAN [Suspect]
     Route: 064
  2. HYDROCHLOROTHIAZIDE [Suspect]
     Route: 064
  3. LECARDINIPINE [Suspect]
     Route: 064
  4. CLONIDINE [Suspect]
     Route: 064

REACTIONS (17)
  - BLOOD CREATININE INCREASED [None]
  - CRANIAL SUTURES WIDENING [None]
  - CREATININE RENAL CLEARANCE DECREASED [None]
  - DELAYED FONTANELLE CLOSURE [None]
  - DRUG EXPOSURE DURING PREGNANCY [None]
  - HYPOTENSION [None]
  - KIDNEY MALFORMATION [None]
  - LIMB MALFORMATION [None]
  - OLIGURIA [None]
  - PNEUMOTHORAX [None]
  - POLYURIA [None]
  - POTTER'S SYNDROME [None]
  - PULMONARY HYPERTENSION [None]
  - RENAL FAILURE ACUTE [None]
  - RENIN INCREASED [None]
  - RESPIRATORY DISTRESS [None]
  - SKULL MALFORMATION [None]
